FAERS Safety Report 7407739-4 (Version None)
Quarter: 2011Q2

REPORT INFORMATION
  Report Type: 
  Country: None (occurrence: None)
  Receive Date: 20110412
  Receipt Date: 20110103
  Transmission Date: 20111010
  Serious: Yes (Death)
  Sender: FDA-Public Use
  Company Number: US-BAYER-2011-002353

PATIENT
  Age: 46 Year
  Sex: Male

DRUGS (5)
  1. PYRETHRUM EXTRACT [Suspect]
  2. ETHANOL [Suspect]
  3. PARACETAMOL + DIPHENHYDRAMINE [Suspect]
     Route: 048
  4. METFORMIN HCL [Suspect]
     Route: 048
  5. COCAINE [Suspect]

REACTIONS (1)
  - TOXICITY TO VARIOUS AGENTS [None]
